FAERS Safety Report 7291461-1 (Version None)
Quarter: 2011Q1

REPORT INFORMATION
  Report Type: 
  Country: None (occurrence: None)
  Receive Date: 20110202
  Receipt Date: 20110125
  Transmission Date: 20110831
  Serious: Yes (Disabling)
  Sender: FDA-Public Use
  Company Number: 2011MA000727

PATIENT
  Age: 17 Year
  Sex: Female

DRUGS (4)
  1. SOLUTION USP [Concomitant]
  2. MIRTAZAPINE TABLETS 45 MG (AMIDE) (MIRTRAZAPINE) [Suspect]
     Indication: DEPRESSION
     Dosage: 1MG; Q5D;PO
     Route: 048
  3. FLUOXETINE [Concomitant]
  4. CITALOPRAM HYDROBROMIDE [Concomitant]

REACTIONS (11)
  - PRESYNCOPE [None]
  - AGITATION [None]
  - ABNORMAL DREAMS [None]
  - EAR DISCOMFORT [None]
  - NAUSEA [None]
  - IRRITABILITY [None]
  - TINNITUS [None]
  - ILLUSION [None]
  - DRUG WITHDRAWAL SYNDROME [None]
  - HEADACHE [None]
  - SLEEP DISORDER [None]
